FAERS Safety Report 14846743 (Version 3)
Quarter: 2018Q2

REPORT INFORMATION
  Report Type: Spontaneous
  Country: PT (occurrence: PT)
  Receive Date: 20180504
  Receipt Date: 20180611
  Transmission Date: 20180711
  Serious: Yes (Other)
  Sender: FDA-Public Use
  Company Number: PT-009507513-1804PRT009218

PATIENT
  Age: 36 Year
  Sex: Male

DRUGS (2)
  1. SINEMET [Suspect]
     Active Substance: CARBIDOPA\LEVODOPA
     Dosage: CONTINUOUS INCREASES IN THE L-DOPA DOSAGE
     Route: 048
  2. SINEMET [Suspect]
     Active Substance: CARBIDOPA\LEVODOPA
     Indication: PARKINSON^S DISEASE
     Dosage: LEVODOPA+ CARBIDOPA 100/25 MG, BID
     Route: 048

REACTIONS (6)
  - Hypokalaemia [Unknown]
  - Akathisia [Unknown]
  - Aggression [Unknown]
  - Extra dose administered [Unknown]
  - Hallucination, visual [Unknown]
  - Dyskinesia [Unknown]
